FAERS Safety Report 6257653-5 (Version None)
Quarter: 2009Q3

REPORT INFORMATION
  Report Type: 
  Country: None (occurrence: None)
  Receive Date: 20090706
  Receipt Date: 20090625
  Transmission Date: 20100115
  Serious: Yes (Other)
  Sender: FDA-Public Use
  Company Number: AU-ASTRAZENECA-2009AP02829

PATIENT
  Age: 42 Year
  Sex: Female

DRUGS (3)
  1. ARIMIDEX [Suspect]
     Indication: BREAST CANCER
     Route: 048
  2. INSULIN [Concomitant]
     Indication: DIABETES MELLITUS
  3. WARFARIN [Concomitant]

REACTIONS (6)
  - BLINDNESS UNILATERAL [None]
  - CARDIAC DISORDER [None]
  - DIABETES MELLITUS [None]
  - FALL [None]
  - HERPES ZOSTER [None]
  - SKIN DISCOLOURATION [None]
